FAERS Safety Report 10196676 (Version 1)
Quarter: 2014Q2

REPORT INFORMATION
  Report Type: Spontaneous
  Country: US (occurrence: None)
  Receive Date: 20140522
  Receipt Date: 20140522
  Transmission Date: 20141212
  Serious: Yes (Other)
  Sender: FDA-Public Use
  Company Number: 001734918A

PATIENT
  Age: 34 Year
  Sex: Female

DRUGS (2)
  1. XOUT 30 DAY KIT WASH IN TREATMENT [Suspect]
     Indication: ACNE
     Dosage: ONCE DAILY DERMAL
     Dates: start: 20140408
  2. XOUT 30 DAY KIT CLEANSING BODY BAR [Suspect]
     Indication: ACNE
     Dosage: ONCE DAILY DERMAL
     Dates: start: 20140408

REACTIONS (3)
  - Hypersensitivity [None]
  - Eye swelling [None]
  - Urticaria [None]
